FAERS Safety Report 11254699 (Version 1)
Quarter: 2015Q3

REPORT INFORMATION
  Report Type: Spontaneous
  Country: US (occurrence: None)
  Receive Date: 20150708
  Receipt Date: 20150708
  Transmission Date: 20151125
  Serious: No
  Sender: FDA-Public Use
  Company Number: None

PATIENT
  Age: 26 Year
  Sex: Male
  Weight: 104.33 kg

DRUGS (1)
  1. APTIOM [Suspect]
     Active Substance: ESLICARBAZEPINE ACETATE
     Indication: COMPLEX PARTIAL SEIZURES
     Dosage: 2 PILLS
     Route: 048
     Dates: start: 20141126, end: 20150707

REACTIONS (5)
  - Mood swings [None]
  - Dizziness [None]
  - Anger [None]
  - Memory impairment [None]
  - Paranoia [None]

NARRATIVE: CASE EVENT DATE: 20150705
